FAERS Safety Report 17075341 (Version 3)
Quarter: 2020Q1

REPORT INFORMATION
  Report Type: Spontaneous
  Country: US (occurrence: US)
  Receive Date: 20191126
  Receipt Date: 20200127
  Transmission Date: 20200409
  Serious: No
  Sender: FDA-Public Use
  Company Number: US-PFIZER INC-2019443834

PATIENT
  Age: 87 Year
  Sex: Male
  Weight: 99.77 kg

DRUGS (19)
  1. TRAMADOL. [Concomitant]
     Active Substance: TRAMADOL
     Dosage: 50 MG, AS NEEDED (TAKE 1 TABLET (50 MG) BY ORAL ROUTE EVERY 6 HOURS AS NEEDED)
     Route: 048
  2. SPIRONOLACTONE. [Concomitant]
     Active Substance: SPIRONOLACTONE
     Dosage: 0.5 DF, DAILY (TAKE 0.5 TABLET BY ORAL ROUTE EVERY DAY)
     Route: 048
  3. VITAMIN B6 [Concomitant]
     Active Substance: PYRIDOXINE HYDROCHLORIDE
     Dosage: 100 MG, 1X/DAY
  4. VITAMIN D3 [Concomitant]
     Active Substance: CHOLECALCIFEROL
     Dosage: 1 DF, 1X/DAY (TAKE 1 ONCE EACH AFTERNOON)
  5. VYNDAQEL [Suspect]
     Active Substance: TAFAMIDIS MEGLUMINE
     Indication: CARDIAC DISORDER
     Dosage: 80 MG, DAILY (4-20 MG)
     Route: 048
     Dates: start: 20191116
  6. FUROSEMIDE. [Concomitant]
     Active Substance: FUROSEMIDE
     Dosage: 20 MG, DAILY
     Route: 048
  7. AMIODARONE HCL [Concomitant]
     Active Substance: AMIODARONE HYDROCHLORIDE
     Dosage: 200 MG, DAILY  (TAKE 1 TABLET BY MOUTH DAILY)
     Route: 048
  8. EZETIMIBE. [Concomitant]
     Active Substance: EZETIMIBE
     Dosage: 10 MG, DAILY (TAKE 1 BY ORAL ROUTE EVERY DAY)
     Route: 048
  9. VYNDAQEL [Suspect]
     Active Substance: TAFAMIDIS MEGLUMINE
     Indication: AMYLOIDOSIS
     Dosage: 80 MG, DAILY (4-20 MG)
     Dates: end: 20190909
  10. MYSOLINE [Concomitant]
     Active Substance: PRIMIDONE
     Dosage: 50 MG, 2X/DAY (TAKE 1 TABLET BY ORAL ROUTE 2 TIMES A EVERYDAY)
     Route: 048
  11. UNITHROID [Concomitant]
     Active Substance: LEVOTHYROXINE SODIUM
     Dosage: 88 UG, DAILY (TAKE 1 TABLET BY ORAL ROUTE EVERY DAY)
     Route: 048
  12. XANAX [Concomitant]
     Active Substance: ALPRAZOLAM
     Dosage: 0.25 MG, 2X/DAY  (TAKE 1 TABLET BY ORAL ROUTE 2 TIMES EVERYDAY)
     Route: 048
  13. ESCITALOPRAM [ESCITALOPRAM OXALATE] [Concomitant]
     Active Substance: ESCITALOPRAM OXALATE
     Dosage: 5 MG, DAILY (TAKE 1 TABLET BY ORAL ROUTE EVERYDAY)
     Route: 048
  14. PRADAXA [Concomitant]
     Active Substance: DABIGATRAN ETEXILATE MESYLATE
     Dosage: 150 MG, 2X/DAY  (TAKE 1 CAPSULE BY ORAL ROUTE 2 TIMES EVERY DAY)
     Route: 048
  15. KLOR-CON [Concomitant]
     Active Substance: POTASSIUM CHLORIDE
     Dosage: 10 MEQ, 1X/DAY (TAKE 1 TABLET BY ORAL ROUTE EVERYDAY WITH FOOD)
     Route: 048
  16. VYNDAQEL [Suspect]
     Active Substance: TAFAMIDIS MEGLUMINE
     Indication: CARDIAC AMYLOIDOSIS
  17. METHENAMINE HIPPURATE. [Concomitant]
     Active Substance: METHENAMINE HIPPURATE
     Dosage: 1 G, 2X/DAY (TAKE 1 TABLET (1G) BY ORAL ROUTE 2 TIMES EVERY DAY)
     Route: 048
  18. ATORVASTATIN CALCIUM. [Concomitant]
     Active Substance: ATORVASTATIN CALCIUM
     Dosage: 80 MG, DAILY (TAKE 1 TABLET BY ORAL ROUTE EVERYDAY WITH FOOD)
     Route: 048
  19. ESTER-C [ASCORBIC ACID;BIOFLAVONOIDS] [Concomitant]
     Dosage: UNK (1000 MG-200 MG TABLET)

REACTIONS (3)
  - Malaise [Not Recovered/Not Resolved]
  - Tremor [Not Recovered/Not Resolved]
  - Dysgraphia [Not Recovered/Not Resolved]

NARRATIVE: CASE EVENT DATE: 20191116
